FAERS Safety Report 9296744 (Version 3)
Quarter: 2014Q2

REPORT INFORMATION
  Report Type: Spontaneous
  Country: US (occurrence: US)
  Receive Date: 20130517
  Receipt Date: 20140501
  Transmission Date: 20141212
  Serious: Yes (Hospitalization)
  Sender: FDA-Public Use
  Company Number: US-B.I. PHARMACEUTICALS,INC./RIDGEFIELD-2013-BI-13376BP

PATIENT
  Sex: Male
  Weight: 73.48 kg

DRUGS (11)
  1. PRADAXA [Suspect]
     Indication: ANTICOAGULANT THERAPY
     Dosage: 300 MG
     Route: 048
     Dates: start: 20110119, end: 201107
  2. PROVENTIL INHALER [Concomitant]
     Route: 065
  3. ALBUTEROL [Concomitant]
     Route: 065
  4. AMIODARONE [Concomitant]
     Dosage: 200 MG
     Route: 048
  5. ASA [Concomitant]
     Dosage: 81 MG
     Route: 048
  6. CARVEDILOL [Concomitant]
     Route: 048
  7. LORAZEPAM [Concomitant]
     Dosage: 3 MG
     Route: 065
  8. NITROGLYCERIN [Concomitant]
     Route: 060
  9. OMEPRAZOLE [Concomitant]
     Dosage: 20 MG
     Route: 048
  10. PRIMIDONE [Concomitant]
     Dosage: 50 MG
     Route: 048
  11. SIMVASTATIN [Concomitant]
     Dosage: 80 MG
     Route: 048

REACTIONS (6)
  - Gastrointestinal haemorrhage [Unknown]
  - Iron deficiency anaemia [Unknown]
  - Limb injury [Unknown]
  - Joint injury [Unknown]
  - Muscle spasms [Unknown]
  - Myalgia [Unknown]
